FAERS Safety Report 13110274 (Version 1)
Quarter: 2017Q1

REPORT INFORMATION
  Report Type: Spontaneous
  Country: US (occurrence: US)
  Receive Date: 20170112
  Receipt Date: 20170112
  Transmission Date: 20170428
  Serious: No
  Sender: FDA-Public Use
  Company Number: US-ROCHE-1416556

PATIENT
  Age: 65 Year
  Sex: Female

DRUGS (1)
  1. ACTIVASE [Suspect]
     Active Substance: ALTEPLASE
     Indication: ISCHAEMIC STROKE
     Dosage: THERAPY START DATE:  30/MAY
     Route: 065

REACTIONS (2)
  - Angioedema [Recovered/Resolved]
  - Tongue disorder [Recovered/Resolved]
